FAERS Safety Report 12984270 (Version 2)
Quarter: 2016Q4

REPORT INFORMATION
  Report Type: Spontaneous
  Country: US (occurrence: US)
  Receive Date: 20161129
  Receipt Date: 20161212
  Transmission Date: 20170207
  Serious: No
  Sender: FDA-Public Use
  Company Number: US-009507513-1611USA013506

PATIENT
  Age: 23 Year
  Sex: Female
  Weight: 49.89 kg

DRUGS (1)
  1. NEXPLANON [Suspect]
     Active Substance: ETONOGESTREL
     Indication: CONTRACEPTION
     Dosage: 68MG / 1 ROD EVERY 3 YEARS
     Route: 059
     Dates: start: 20150608

REACTIONS (2)
  - Device expulsion [Not Recovered/Not Resolved]
  - Administration site discomfort [Not Recovered/Not Resolved]

NARRATIVE: CASE EVENT DATE: 20161107
